FAERS Safety Report 5122162-3 (Version None)
Quarter: 2006Q4

REPORT INFORMATION
  Report Type: 
  Country: None (occurrence: None)
  Receive Date: 20061003
  Receipt Date: 20060925
  Transmission Date: 20070319
  Serious: Yes (Hospitalization)
  Sender: FDA-Public Use
  Company Number: HQWYE112525SEP06

PATIENT
  Age: 57 Year
  Sex: Female

DRUGS (1)
  1. INDERAL [Suspect]
     Dosage: 40 MG 1X PER 1 DAY, ORAL
     Route: 048

REACTIONS (2)
  - BLOOD PRESSURE INCREASED [None]
  - DEVICE MALFUNCTION [None]
